FAERS Safety Report 15665212 (Version 1)
Quarter: 2018Q4

REPORT INFORMATION
  Report Type: Spontaneous
  Country: US (occurrence: US)
  Receive Date: 20181128
  Receipt Date: 20181128
  Transmission Date: 20190205
  Serious: No
  Sender: FDA-Public Use
  Company Number: US-PERRIGO-17US028100

PATIENT
  Age: 64 Year
  Sex: Female
  Weight: 49.89 kg

DRUGS (3)
  1. VITAMINS NOS [Concomitant]
     Active Substance: VITAMINS
     Indication: SUPPLEMENTATION THERAPY
     Dosage: UNK
     Route: 065
  2. NICOTINE POLACRILEX [Suspect]
     Active Substance: NICOTINE
     Indication: SMOKING CESSATION THERAPY
     Dosage: 2 MG, PRN
     Route: 002
     Dates: start: 2013
  3. ESTROGEN NOS [Concomitant]
     Active Substance: ESTROGENS
     Indication: HORMONE REPLACEMENT THERAPY
     Dosage: UNK
     Route: 065

REACTIONS (1)
  - Urticaria [Not Recovered/Not Resolved]

NARRATIVE: CASE EVENT DATE: 20171103
